FAERS Safety Report 6591341-0 (Version None)
Quarter: 2010Q1

REPORT INFORMATION
  Report Type: 
  Country: None (occurrence: None)
  Receive Date: 20100219
  Receipt Date: 20100215
  Transmission Date: 20100710
  Serious: Yes (Disabling)
  Sender: FDA-Public Use
  Company Number: GB-TEVA-224403ISR

PATIENT
  Age: 68 Year
  Sex: Male

DRUGS (2)
  1. TRIMETHOPRIM [Suspect]
     Route: 048
  2. EXENATIDE [Suspect]
     Route: 058
     Dates: start: 20091026

REACTIONS (3)
  - DRY MOUTH [None]
  - NAUSEA [None]
  - TINNITUS [None]
